FAERS Safety Report 23587051 (Version 1)
Quarter: 2024Q1

REPORT INFORMATION
  Report Type: Spontaneous
  Country: CN (occurrence: CN)
  Receive Date: 20240301
  Receipt Date: 20240301
  Transmission Date: 20240410
  Serious: Yes (Hospitalization, Other)
  Sender: FDA-Public Use
  Company Number: None

PATIENT
  Age: 29 Year
  Sex: Male

DRUGS (3)
  1. CYCLOPHOSPHAMIDE [Suspect]
     Active Substance: CYCLOPHOSPHAMIDE
     Indication: Malignant neoplasm of thorax
     Dosage: 3.6 G, ONE TIME IN ONE DAY, THREE TIMES AT 0, 4, 8 HOURS, D1-D3
     Route: 041
     Dates: start: 20240112, end: 20240114
  2. MESNA [Suspect]
     Active Substance: MESNA
     Indication: Malignant neoplasm of thorax
     Dosage: 1.2G/4 HOURS
     Route: 041
     Dates: start: 20240112
  3. DOXORUBICIN HYDROCHLORIDE [Suspect]
     Active Substance: DOXORUBICIN HYDROCHLORIDE
     Indication: Malignant neoplasm of thorax
     Dosage: 40 MG, ONE TIME IN ONE DAY, D1-D2
     Route: 041
     Dates: start: 20240112, end: 20240113

REACTIONS (8)
  - Myelosuppression [Recovering/Resolving]
  - Dyspnoea [Unknown]
  - Pyrexia [Unknown]
  - Toxicity to various agents [Unknown]
  - Vomiting [Unknown]
  - Nausea [Unknown]
  - Cough [Unknown]
  - Diarrhoea [Unknown]

NARRATIVE: CASE EVENT DATE: 20240122
